FAERS Safety Report 5402884-7 (Version None)
Quarter: 2007Q3

REPORT INFORMATION
  Report Type: 
  Country: None (occurrence: None)
  Receive Date: 20070801
  Receipt Date: 20070719
  Transmission Date: 20080115
  Serious: Yes (Hospitalization, Other)
  Sender: FDA-Public Use
  Company Number: FR-ROCHE-508826

PATIENT
  Sex: Female

DRUGS (1)
  1. CELLCEPT [Suspect]
     Dosage: GRADUALLY INCREASED DOSAGE OF 550MG PER DAY, 1GRAM PER DAY AND THEN 2 GRAM PER DAY
     Route: 065
     Dates: end: 20070601

REACTIONS (2)
  - NEUTROPENIA [None]
  - SYSTEMIC LUPUS ERYTHEMATOSUS [None]
